FAERS Safety Report 14250278 (Version 1)
Quarter: 2017Q4

REPORT INFORMATION
  Report Type: Spontaneous
  Country: US (occurrence: None)
  Receive Date: 20171205
  Receipt Date: 20171205
  Transmission Date: 20180321
  Serious: Yes (Hospitalization)
  Sender: FDA-Public Use
  Company Number: None

PATIENT
  Age: 67 Year
  Sex: Male

DRUGS (1)
  1. PIPERACILLIN/TAZOBACTAM [Suspect]
     Active Substance: PIPERACILLIN SODIUM\TAZOBACTAM SODIUM
     Route: 042
     Dates: start: 20171020, end: 20171023

REACTIONS (4)
  - Therapy cessation [None]
  - Tubulointerstitial nephritis [None]
  - Eosinophils urine present [None]
  - Acute kidney injury [None]

NARRATIVE: CASE EVENT DATE: 20171023
